FAERS Safety Report 15961988 (Version 2)
Quarter: 2019Q1

REPORT INFORMATION
  Report Type: Spontaneous
  Country: CA (occurrence: CA)
  Receive Date: 20190214
  Receipt Date: 20190318
  Transmission Date: 20190417
  Serious: Yes (Other)
  Sender: FDA-Public Use
  Company Number: CA-AMREGENT-20190250

PATIENT
  Age: 34 Year
  Sex: Female
  Weight: 98 kg

DRUGS (5)
  1. IRON SUPPLEMENT [Concomitant]
     Active Substance: IRON
     Dosage: 1 TAB DAILY
     Route: 065
  2. TRAMACET [Concomitant]
     Active Substance: ACETAMINOPHEN\TRAMADOL
     Dosage: 2 TABS EVERY 4 HR
     Route: 048
  3. VENOFER [Suspect]
     Active Substance: IRON SUCROSE
     Dosage: 300 MG 1 EVERY 30 D
     Route: 042
     Dates: start: 20180921, end: 20180921
  4. VITAMIN B12 [Concomitant]
     Active Substance: CYANOCOBALAMIN
     Dosage: 1 TAB DAILY
     Route: 048
  5. CYMBALTA [Concomitant]
     Active Substance: DULOXETINE HYDROCHLORIDE
     Dosage: 30 MG DAILY
     Route: 048

REACTIONS (2)
  - Pneumonia [Unknown]
  - Chest pain [Unknown]

NARRATIVE: CASE EVENT DATE: 20181005
